FAERS Safety Report 10244735 (Version 1)
Quarter: 2014Q2

REPORT INFORMATION
  Report Type: Spontaneous
  Country: US (occurrence: US)
  Receive Date: 20140618
  Receipt Date: 20140618
  Transmission Date: 20141212
  Serious: No
  Sender: FDA-Public Use
  Company Number: US-PFIZER INC-2014165345

PATIENT
  Age: 83 Year
  Sex: Female
  Weight: 58.96 kg

DRUGS (4)
  1. TOVIAZ [Suspect]
     Indication: HYPERTONIC BLADDER
     Dosage: 4 MG, DAILY
     Dates: start: 2014, end: 2014
  2. TOVIAZ [Suspect]
     Dosage: 8 MG, DAILY
     Dates: start: 2014
  3. LOSARTAN [Concomitant]
     Indication: BLOOD PRESSURE ABNORMAL
     Dosage: 50 MG, DAILY
  4. TRIAMTERENE AND HYDROCHLOROTHIZIDE [Concomitant]
     Indication: BLOOD PRESSURE ABNORMAL
     Dosage: 12.5 MG, DAILY

REACTIONS (1)
  - Muscle spasms [Not Recovered/Not Resolved]
